FAERS Safety Report 5723038-0 (Version None)
Quarter: 2008Q2

REPORT INFORMATION
  Report Type: 
  Country: None (occurrence: None)
  Receive Date: 20080423
  Receipt Date: 20070920
  Transmission Date: 20081010
  Serious: Yes (Life-Threatening, Hospitalization)
  Sender: FDA-Public Use
  Company Number: 248136

PATIENT
  Age: 68 Year
  Sex: Male
  Weight: 87.7 kg

DRUGS (5)
  1. AVASTIN [Suspect]
     Indication: COLON CANCER
     Dosage: 450 MG, Q2W, INTRAVENOUS
     Route: 042
     Dates: start: 20061219
  2. LEUCOVORIN CALCIUM [Concomitant]
  3. FLUOROURACIL [Concomitant]
  4. IRINOTECAN HCL [Concomitant]
  5. WARFARIN SODIUM [Concomitant]

REACTIONS (2)
  - BRONCHIAL FISTULA [None]
  - CATHETER RELATED COMPLICATION [None]
